FAERS Safety Report 10586237 (Version 1)
Quarter: 2014Q4

REPORT INFORMATION
  Report Type: Spontaneous
  Country: CA (occurrence: CA)
  Receive Date: 20141116
  Receipt Date: 20141116
  Transmission Date: 20150529
  Serious: Yes (Other)
  Sender: FDA-Public Use
  Company Number: CA-ROCHE-1489322

PATIENT
  Age: 60 Year
  Sex: Female

DRUGS (12)
  1. RIBAVIRIN. [Suspect]
     Active Substance: RIBAVIRIN
     Indication: PRODUCT USED FOR UNKNOWN INDICATION
     Route: 048
  2. RIBAVIRIN. [Suspect]
     Active Substance: RIBAVIRIN
     Route: 065
  3. INCIVEK [Suspect]
     Active Substance: TELAPREVIR
     Indication: PRODUCT USED FOR UNKNOWN INDICATION
     Dosage: THERAPY DURATION: 2 MONTHS
     Route: 065
  4. INCIVEK [Suspect]
     Active Substance: TELAPREVIR
     Route: 048
  5. PEGASYS [Suspect]
     Active Substance: PEGINTERFERON ALFA-2A
     Indication: PRODUCT USED FOR UNKNOWN INDICATION
     Route: 058
  6. PEGASYS [Suspect]
     Active Substance: PEGINTERFERON ALFA-2A
     Route: 058
  7. HIPEREX [Concomitant]
     Route: 065
  8. RIBAVIRIN. [Suspect]
     Active Substance: RIBAVIRIN
     Route: 048
  9. PEGASYS [Suspect]
     Active Substance: PEGINTERFERON ALFA-2A
     Route: 065
  10. RIBAVIRIN. [Suspect]
     Active Substance: RIBAVIRIN
     Dosage: THERAPY DURATION: 1 MONTH
     Route: 065
  11. PEGASYS [Suspect]
     Active Substance: PEGINTERFERON ALFA-2A
     Route: 058
  12. INCIVEK [Suspect]
     Active Substance: TELAPREVIR
     Route: 048

REACTIONS (9)
  - Blood count abnormal [Unknown]
  - Depressed mood [Unknown]
  - Fatigue [Unknown]
  - Haemoglobin decreased [Unknown]
  - Weight decreased [Unknown]
  - Asthenia [Unknown]
  - Confusional state [Unknown]
  - Oedema peripheral [Unknown]
  - Tremor [Unknown]
